FAERS Safety Report 16908041 (Version 2)
Quarter: 2019Q4

REPORT INFORMATION
  Report Type: Spontaneous
  Country: FR (occurrence: FR)
  Receive Date: 20191011
  Receipt Date: 20191225
  Transmission Date: 20200122
  Serious: Yes (Hospitalization)
  Sender: FDA-Public Use
  Company Number: FR-TEVA-2019-FR-1120168

PATIENT
  Age: 87 Year
  Sex: Male
  Weight: 48 kg

DRUGS (5)
  1. ZOPICLONE [Suspect]
     Active Substance: ZOPICLONE
     Indication: INSOMNIA
     Dosage: 7.5 MG
     Route: 048
     Dates: start: 20180319
  2. SERESTA 10 MG, TABLET [Suspect]
     Active Substance: OXAZEPAM
     Indication: ANXIETY
     Dosage: 10 MG
     Route: 048
     Dates: start: 20180319
  3. SEROPLEX 10 MG, SEARED SKINTED TABLET [Suspect]
     Active Substance: ESCITALOPRAM OXALATE
     Indication: DEPRESSION
     Dosage: 10 MG
     Route: 048
     Dates: start: 20180319
  4. CLOZAPINE. [Suspect]
     Active Substance: CLOZAPINE
     Indication: BEHAVIOUR DISORDER
     Dosage: CF COMMENTS
     Route: 048
     Dates: start: 20181015, end: 20190606
  5. KEPPRA [Suspect]
     Active Substance: LEVETIRACETAM
     Indication: EPILEPSY
     Dosage: 1 DOSAGE FORMS, 500 MG, FILMED TABLET
     Route: 048
     Dates: start: 20180319

REACTIONS (4)
  - Pallor [Recovered/Resolved]
  - Malaise [Recovered/Resolved]
  - Dyskinesia [Recovered/Resolved]
  - Syncope [Recovered/Resolved]

NARRATIVE: CASE EVENT DATE: 20181104
